FAERS Safety Report 20131023 (Version 1)
Quarter: 2021Q4

REPORT INFORMATION
  Report Type: Spontaneous
  Country: US (occurrence: None)
  Receive Date: 20211130
  Receipt Date: 20211130
  Transmission Date: 20220303
  Serious: Yes (Life-Threatening, Hospitalization, Other)
  Sender: FDA-Public Use
  Company Number: None

PATIENT
  Age: 60 Year
  Sex: Female
  Weight: 54.43 kg

DRUGS (7)
  1. SUMATRIPTAN [Suspect]
     Active Substance: SUMATRIPTAN
     Indication: Migraine
     Dosage: FREQUENCY : AS NEEDED;?
     Dates: start: 2000, end: 20210625
  2. ATORVASTATIN CALCIUM [Concomitant]
     Active Substance: ATORVASTATIN CALCIUM
  3. METOPROLOL SUCCINATE [Concomitant]
     Active Substance: METOPROLOL SUCCINATE
  4. VITAMIN D3 [Concomitant]
     Active Substance: CHOLECALCIFEROL
  5. VITAMINS [Concomitant]
     Active Substance: VITAMINS
  6. LUTEIN [Concomitant]
     Active Substance: LUTEIN
  7. FISH OIL [Concomitant]
     Active Substance: FISH OIL

REACTIONS (4)
  - Circulatory collapse [None]
  - Myocardial infarction [None]
  - Acute myocardial infarction [None]
  - Ventricular tachycardia [None]

NARRATIVE: CASE EVENT DATE: 20210625
